FAERS Safety Report 6945564-9 (Version None)
Quarter: 2010Q3

REPORT INFORMATION
  Report Type: 
  Country: None (occurrence: None)
  Receive Date: 20100819
  Receipt Date: 20100807
  Transmission Date: 20110219
  Serious: Yes (Other)
  Sender: FDA-Public Use
  Company Number: 2010AP001705

PATIENT
  Age: 67 Year
  Sex: Male

DRUGS (2)
  1. ONDANSETRON [Suspect]
     Indication: NAUSEA
     Dosage: 4 MG; Q6H; IV
     Route: 042
  2. ONDANSETRON [Suspect]
     Indication: VOMITING
     Dosage: 4 MG; Q6H; IV
     Route: 042

REACTIONS (3)
  - DRUG WITHDRAWAL SYNDROME [None]
  - FLUSHING [None]
  - TREMOR [None]
